FAERS Safety Report 10740279 (Version 2)
Quarter: 2015Q1

REPORT INFORMATION
  Report Type: Spontaneous
  Country: CH (occurrence: CH)
  Receive Date: 20150127
  Receipt Date: 20150303
  Transmission Date: 20150721
  Serious: Yes (Hospitalization)
  Sender: FDA-Public Use
  Company Number: CH-BIOGENIDEC-2015BI008421

PATIENT
  Age: 48 Year
  Sex: Male

DRUGS (6)
  1. STILNOX [Concomitant]
     Active Substance: ZOLPIDEM TARTRATE
  2. CETIRIZIN [Concomitant]
     Active Substance: CETIRIZINE HYDROCHLORIDE
  3. LYRICA [Concomitant]
     Active Substance: PREGABALIN
  4. PANTOPRAZOLE [Concomitant]
     Active Substance: PANTOPRAZOLE SODIUM
  5. TYSABRI [Suspect]
     Active Substance: NATALIZUMAB
     Indication: RELAPSING-REMITTING MULTIPLE SCLEROSIS
     Route: 042
     Dates: start: 20070622, end: 20150106
  6. NOVALGIN [Concomitant]
     Active Substance: METAMIZOLE SODIUM

REACTIONS (7)
  - Hypertension [Unknown]
  - Spinal pain [Not Recovered/Not Resolved]
  - Atelectasis [Unknown]
  - Sleep apnoea syndrome [Unknown]
  - Clear cell renal cell carcinoma [Unknown]
  - Meniscus injury [Unknown]
  - Large intestine polyp [Unknown]

NARRATIVE: CASE EVENT DATE: 2008
